FAERS Safety Report 18223913 (Version 5)
Quarter: 2020Q4

REPORT INFORMATION
  Report Type: Report from Study
  Country: US (occurrence: US)
  Receive Date: 20200902
  Receipt Date: 20201224
  Transmission Date: 20210113
  Serious: Yes (Hospitalization, Other)
  Sender: FDA-Public Use
  Company Number: US-TAKEDA-2020TUS036637

PATIENT
  Age: 17 Year
  Sex: Male
  Weight: 58 kg

DRUGS (2)
  1. VEDOLIZUMAB [Suspect]
     Active Substance: VEDOLIZUMAB
     Indication: COLITIS ULCERATIVE
     Dosage: 300 MILLIGRAM, Q4WEEKS
     Route: 042
     Dates: start: 20200130, end: 20200731
  2. MESALAZINE [Suspect]
     Active Substance: MESALAMINE
     Indication: COLITIS ULCERATIVE
     Dosage: UNK
     Route: 065
     Dates: end: 20200815

REACTIONS (11)
  - Rectal haemorrhage [Unknown]
  - Gastrooesophageal reflux disease [Unknown]
  - Myalgia [Unknown]
  - Drug level decreased [Unknown]
  - Product use issue [Unknown]
  - Off label use [Unknown]
  - Pericardial effusion [Unknown]
  - Drug ineffective [Unknown]
  - Pyrexia [Unknown]
  - Cardiac tamponade [Unknown]
  - Arthralgia [Unknown]

NARRATIVE: CASE EVENT DATE: 20200130
